FAERS Safety Report 9067086 (Version 1)
Quarter: 2013Q1

REPORT INFORMATION
  Report Type: Spontaneous
  Country: JP (occurrence: JP)
  Receive Date: 20130214
  Receipt Date: 20130214
  Transmission Date: 20140127
  Serious: Yes (Other)
  Sender: FDA-Public Use
  Company Number: JP-ROCHE-1190873

PATIENT
  Age: 1 None
  Sex: Male
  Weight: 11.7 kg

DRUGS (1)
  1. TAMIFLU [Suspect]
     Indication: INFLUENZA
     Dosage: DRY SYRUP 3%
     Route: 048
     Dates: start: 20130202, end: 20130202

REACTIONS (2)
  - Restlessness [Recovered/Resolved]
  - Overdose [Unknown]
